FAERS Safety Report 21199079 (Version 1)
Quarter: 2022Q3

REPORT INFORMATION
  Report Type: Spontaneous
  Country: DE (occurrence: DE)
  Receive Date: 20220811
  Receipt Date: 20220811
  Transmission Date: 20221027
  Serious: Yes (Hospitalization, Other)
  Sender: FDA-Public Use
  Company Number: DE-TEVA-2022-DE-2009517

PATIENT
  Age: 52 Year
  Sex: Male

DRUGS (12)
  1. ALBUTEROL [Suspect]
     Active Substance: ALBUTEROL
     Indication: Asthma
     Dosage: 3-5 TIMES PER YEAR TO UP TO 5 TIMES DAILY
     Route: 065
  2. DICLOFENAC [Suspect]
     Active Substance: DICLOFENAC
     Indication: Migraine
     Route: 065
  3. AJOVY [Interacting]
     Active Substance: FREMANEZUMAB-VFRM
     Indication: Migraine prophylaxis
     Route: 065
  4. AJOVY [Interacting]
     Active Substance: FREMANEZUMAB-VFRM
     Route: 065
  5. ALVESCO [Suspect]
     Active Substance: CICLESONIDE
     Indication: Product used for unknown indication
     Route: 065
  6. JANSSEN COVID-19 VACCINE [Interacting]
     Active Substance: AD26.COV2.S
     Indication: Product used for unknown indication
     Route: 065
     Dates: start: 202106
  7. COMIRNATY [Interacting]
     Active Substance: TOZINAMERAN
     Indication: Product used for unknown indication
     Route: 065
     Dates: start: 202111
  8. VITAMIN B COMPLEX [Concomitant]
     Active Substance: CYANOCOBALAMIN\DEXPANTHENOL\NIACINAMIDE\PYRIDOXINE HYDROCHLORIDE\RIBOFLAVIN 5^-PHOSPHATE SODIUM\THIA
     Indication: Product used for unknown indication
  9. ALLOPURINOL [Concomitant]
     Active Substance: ALLOPURINOL
     Indication: Blood uric acid abnormal
     Dosage: HALF A TABLET DAILY
  10. MAGNESIUM [Concomitant]
     Active Substance: MAGNESIUM
     Indication: Product used for unknown indication
  11. ASPIRIN [Concomitant]
     Active Substance: ASPIRIN
     Indication: Migraine
  12. BISOPROLOL [Concomitant]
     Active Substance: BISOPROLOL
     Indication: Migraine

REACTIONS (10)
  - Migraine [Not Recovered/Not Resolved]
  - Extrasystoles [Not Recovered/Not Resolved]
  - Asthma [Not Recovered/Not Resolved]
  - Angina pectoris [Not Recovered/Not Resolved]
  - Myalgia [Not Recovered/Not Resolved]
  - Vasculitis [Not Recovered/Not Resolved]
  - Pain [Not Recovered/Not Resolved]
  - Impaired work ability [Not Recovered/Not Resolved]
  - Drug interaction [Not Recovered/Not Resolved]
  - Palpitations [Not Recovered/Not Resolved]

NARRATIVE: CASE EVENT DATE: 20210101
